FAERS Safety Report 25223939 (Version 3)
Quarter: 2025Q2

REPORT INFORMATION
  Report Type: Report from Study
  Country: JP (occurrence: JP)
  Receive Date: 20250422
  Receipt Date: 20250604
  Transmission Date: 20250717
  Serious: Yes (Life-Threatening, Hospitalization, Other)
  Sender: ABBVIE
  Company Number: JP-TAKEDA-2024TJP014578

PATIENT
  Age: 81 Year
  Sex: Male

DRUGS (31)
  1. LEUPROLIDE ACETATE [Suspect]
     Active Substance: LEUPROLIDE ACETATE
     Indication: Bulbospinal muscular atrophy congenital
     Dosage: 11.25 MILLIGRAM, Q3MONTHS
     Route: 058
     Dates: start: 20210415, end: 20230928
  2. LYRICA [Concomitant]
     Active Substance: PREGABALIN
     Indication: Product used for unknown indication
     Route: 065
  3. MEXILETINE HYDROCHLORIDE [Concomitant]
     Active Substance: MEXILETINE HYDROCHLORIDE
     Indication: Product used for unknown indication
     Route: 065
     Dates: end: 20231208
  4. TOCOPHERYL NICOTINATE, D-.ALPHA. [Concomitant]
     Active Substance: TOCOPHERYL NICOTINATE, D-.ALPHA.
     Indication: Product used for unknown indication
     Route: 065
  5. BISACODYL [Concomitant]
     Active Substance: BISACODYL
     Indication: Constipation
     Dates: start: 20231130, end: 20231210
  6. METHYLCOBALAMIN [Concomitant]
     Active Substance: METHYLCOBALAMIN
     Indication: Product used for unknown indication
     Dates: end: 20231208
  7. NEXIUM [Concomitant]
     Active Substance: ESOMEPRAZOLE MAGNESIUM
     Indication: Product used for unknown indication
     Dates: end: 20231126
  8. SHAKUYAKUKANZOTO [Concomitant]
     Active Substance: HERBALS
     Indication: Product used for unknown indication
  9. Hypen [Concomitant]
     Indication: Product used for unknown indication
  10. Loxoprofen Sodium Kokando [Concomitant]
     Indication: Product used for unknown indication
  11. HYALURONATE SODIUM [Concomitant]
     Active Substance: HYALURONATE SODIUM
     Indication: Conjunctivitis allergic
     Route: 047
     Dates: start: 20220428
  12. DIAZEPAM [Concomitant]
     Active Substance: DIAZEPAM
     Indication: Seizure
     Dates: start: 20240205, end: 20240205
  13. MOMETASONE FUROATE MONOHYDRATE [Concomitant]
     Active Substance: MOMETASONE FUROATE MONOHYDRATE
     Indication: Rhinitis allergic
     Dosage: QD
     Route: 045
     Dates: start: 20221027
  14. LIMAPROST [Concomitant]
     Active Substance: LIMAPROST
     Indication: Product used for unknown indication
     Dates: end: 20231208
  15. Gentamicin sulfate iwaki [Concomitant]
     Indication: Eczema
     Dosage: QD
     Route: 065
     Dates: start: 20220804
  16. MIYA-BM [Concomitant]
     Active Substance: CLOSTRIDIUM BUTYRICUM SPORES STRAIN M-55
     Indication: Diarrhoea
     Dates: start: 20240211, end: 20240222
  17. TELMISARTAN [Concomitant]
     Active Substance: TELMISARTAN
     Indication: Hypertension
     Dates: start: 20240116, end: 20240126
  18. VALACYCLOVIR HYDROCHLORIDE [Concomitant]
     Active Substance: VALACYCLOVIR HYDROCHLORIDE
     Indication: Herpes zoster
     Dates: start: 20231201, end: 20231207
  19. Spironolactone dc [Concomitant]
     Indication: Cardiac failure chronic
     Dates: start: 20240112, end: 20240222
  20. PEMAFIBRATE [Concomitant]
     Active Substance: PEMAFIBRATE
     Indication: Hyperlipidaemia
     Dates: start: 20240113, end: 20240222
  21. URAPIDIL [Concomitant]
     Active Substance: URAPIDIL
     Indication: Dysuria
     Dates: start: 20240105, end: 20240105
  22. Azosemide dsep [Concomitant]
     Indication: Cardiac failure chronic
     Dates: start: 20231229, end: 20240112
  23. MEYLON [Concomitant]
     Active Substance: SODIUM BICARBONATE
     Indication: Seizure
     Dates: start: 20240205, end: 20240205
  24. TOLVAPTAN [Concomitant]
     Active Substance: TOLVAPTAN
     Indication: Cardiac failure chronic
     Dates: start: 20240116, end: 20240222
  25. POTASSIUM GLUCONATE [Concomitant]
     Active Substance: POTASSIUM GLUCONATE
     Indication: Hypokalaemia
     Dates: start: 20240206, end: 20240222
  26. Silodosin od [Concomitant]
     Indication: Dysuria
     Dates: start: 20240111, end: 20240209
  27. QUETIAPINE [Concomitant]
     Active Substance: QUETIAPINE
     Indication: Restlessness
     Dates: start: 20231228, end: 20240222
  28. ISOSORBIDE DINITRATE [Concomitant]
     Active Substance: ISOSORBIDE DINITRATE
     Indication: Product used for unknown indication
     Dates: start: 20231103, end: 20231208
  29. HERBALS [Concomitant]
     Active Substance: HERBALS
     Indication: Restlessness
     Dates: start: 20231228, end: 20240222
  30. DISTIGMINE BROMIDE [Concomitant]
     Active Substance: DISTIGMINE BROMIDE
     Indication: Dysuria
     Dates: start: 20240118, end: 20240209
  31. FUROSEMIDE [Concomitant]
     Active Substance: FUROSEMIDE
     Indication: Cardiac failure chronic
     Dates: start: 20240113, end: 20240222

REACTIONS (12)
  - Sepsis [Recovered/Resolved]
  - Back pain [Recovered/Resolved]
  - Pneumonia [Recovered/Resolved with Sequelae]
  - Peripheral vein thrombosis [Recovering/Resolving]
  - Insomnia [Recovering/Resolving]
  - Femur fracture [Recovered/Resolved with Sequelae]
  - Hypokalaemia [Recovering/Resolving]
  - Lipids abnormal [Not Recovered/Not Resolved]
  - Herpes zoster [Recovered/Resolved]
  - Constipation [Recovering/Resolving]
  - Restlessness [Not Recovered/Not Resolved]
  - Pleural effusion [Recovering/Resolving]

NARRATIVE: CASE EVENT DATE: 20210708
